FAERS Safety Report 11143593 (Version 1)
Quarter: 2015Q2

REPORT INFORMATION
  Report Type: Spontaneous
  Country: US (occurrence: None)
  Receive Date: 20150527
  Receipt Date: 20150527
  Transmission Date: 20150821
  Serious: Yes (Death, Hospitalization)
  Sender: FDA-Public Use
  Company Number: None

PATIENT
  Age: 69 Year
  Sex: Male
  Weight: 84 kg

DRUGS (2)
  1. BUSULFAN [Suspect]
     Active Substance: BUSULFAN
     Dates: end: 20141013
  2. FLUDARABINE PHOSPHATE. [Suspect]
     Active Substance: FLUDARABINE PHOSPHATE
     Dates: end: 20141013

REACTIONS (23)
  - Nausea [None]
  - Rash erythematous [None]
  - Food intolerance [None]
  - Axillary vein thrombosis [None]
  - Malnutrition [None]
  - Mental status changes [None]
  - Abdominal pain [None]
  - Asthenia [None]
  - Hypoxia [None]
  - Diarrhoea [None]
  - Subclavian vein thrombosis [None]
  - Anaemia [None]
  - Graft versus host disease in gastrointestinal tract [None]
  - Oedema [None]
  - Mucosal inflammation [None]
  - Alanine aminotransferase increased [None]
  - Muscular weakness [None]
  - Fluid overload [None]
  - Pulmonary embolism [None]
  - Post procedural complication [None]
  - Aspartate aminotransferase increased [None]
  - Generalised oedema [None]
  - Pleural effusion [None]

NARRATIVE: CASE EVENT DATE: 20140404
